FAERS Safety Report 24437636 (Version 1)
Quarter: 2024Q4

REPORT INFORMATION
  Report Type: Spontaneous
  Country: US (occurrence: None)
  Receive Date: 20241011
  Receipt Date: 20241011
  Transmission Date: 20250115
  Serious: Yes (Hospitalization)
  Sender: Public
  Company Number: None

PATIENT
  Sex: Male

DRUGS (4)
  1. STELARA [Suspect]
     Active Substance: USTEKINUMAB
     Indication: Colitis ulcerative
     Route: 058
  2. ALBUTEROL AER HFA [Concomitant]
  3. BOOSTRIX INJ [Concomitant]
  4. STELARA INJ 90MG/ML [Concomitant]

REACTIONS (1)
  - No adverse event [None]
